FAERS Safety Report 10207611 (Version 1)
Quarter: 2014Q2

REPORT INFORMATION
  Report Type: Spontaneous
  Country: US (occurrence: US)
  Receive Date: 20140530
  Receipt Date: 20140530
  Transmission Date: 20141212
  Serious: No
  Sender: FDA-Public Use
  Company Number: US-GLAXOSMITHKLINE-A1051872A

PATIENT
  Age: 70 Year
  Sex: Male

DRUGS (7)
  1. VENTOLIN [Suspect]
     Indication: COUGH
     Dosage: 2PUFF AS REQUIRED
     Route: 055
     Dates: start: 201310
  2. LOSARTAN [Concomitant]
  3. METFORMIN [Concomitant]
  4. TAMSULOSIN [Concomitant]
  5. OMEPRAZOLE [Concomitant]
  6. ASPIRIN [Concomitant]
  7. GLUCOSAMINE [Concomitant]

REACTIONS (1)
  - Off label use [Unknown]
